FAERS Safety Report 6802609-4 (Version None)
Quarter: 2010Q2

REPORT INFORMATION
  Report Type: 
  Country: None (occurrence: None)
  Receive Date: 20100628
  Receipt Date: 20100617
  Transmission Date: 20101027
  Serious: Yes (Hospitalization, Other)
  Sender: FDA-Public Use
  Company Number: AU-JNJFOC-20100507553

PATIENT
  Age: 79 Year
  Sex: Female

DRUGS (15)
  1. RISPERDAL [Suspect]
     Indication: DEMENTIA
     Route: 065
  2. RISPERDAL [Suspect]
     Dosage: DOSE: 2 MG IN THE AFTERNOON
     Route: 065
  3. RISPERDAL [Suspect]
     Route: 065
  4. RISPERDAL [Suspect]
     Dosage: 1 MG MORNING AND NIGHT
     Route: 065
  5. RISPERDAL [Suspect]
     Dosage: 1 MG IN THE AFTERNOON
     Route: 065
  6. RISPERDAL [Suspect]
     Dosage: DOSE: 0.5 MG OR 1 MG AS AN AD HOC DOSE
     Route: 065
  7. RISPERDAL [Suspect]
     Dosage: 1 MG MORNING ANG NIGHT
     Route: 065
  8. RISPERDAL [Suspect]
     Dosage: 0.5 MG MORNING AND NIGHT
     Route: 065
  9. RISPERDAL [Suspect]
     Dosage: DOSE: 1.5 MG MORNING AND NIGHT
     Route: 065
  10. RISPERDAL [Suspect]
     Route: 048
  11. RISPERDAL [Suspect]
     Route: 048
  12. RISPERDAL [Suspect]
     Route: 048
  13. REMINYL [Concomitant]
     Route: 065
  14. MEMANTINE HCL [Concomitant]
     Route: 065
  15. FOSAMAX [Concomitant]
     Route: 065

REACTIONS (14)
  - ABNORMAL BEHAVIOUR [None]
  - AGITATION [None]
  - ANXIETY [None]
  - ASTHENIA [None]
  - FALL [None]
  - FATIGUE [None]
  - GENERAL PHYSICAL HEALTH DETERIORATION [None]
  - INSOMNIA [None]
  - MUSCLE RIGIDITY [None]
  - OFF LABEL USE [None]
  - SOMNOLENCE [None]
  - SPEECH DISORDER [None]
  - SYNCOPE [None]
  - TEARFULNESS [None]
